FAERS Safety Report 9074907 (Version 1)
Quarter: 2013Q1

REPORT INFORMATION
  Report Type: Report from Study
  Country: US (occurrence: US)
  Receive Date: 20130128
  Receipt Date: 20130128
  Transmission Date: 20140127
  Serious: No
  Sender: FDA-Public Use
  Company Number: US-ABBOTT-12P-163-0901130-00

PATIENT
  Age: 15 Year
  Sex: Male

DRUGS (1)
  1. HUMIRA 40 MG/0.8 ML PEN [Suspect]
     Indication: JUVENILE IDIOPATHIC ARTHRITIS
     Route: 050
     Dates: start: 20120131

REACTIONS (2)
  - Nausea [Not Recovered/Not Resolved]
  - Pain in extremity [Unknown]
